FAERS Safety Report 16764361 (Version 1)
Quarter: 2019Q3

REPORT INFORMATION
  Report Type: Report from Study
  Country: US (occurrence: US)
  Receive Date: 20190902
  Receipt Date: 20190902
  Transmission Date: 20191005
  Serious: No
  Sender: FDA-Public Use
  Company Number: PHEH2019US036148

PATIENT
  Sex: Male

DRUGS (1)
  1. NEORAL [Suspect]
     Active Substance: CYCLOSPORINE
     Indication: RENAL TRANSPLANT
     Dosage: UNK
     Route: 005

REACTIONS (5)
  - Fatigue [Unknown]
  - Chromaturia [Unknown]
  - Pain [Unknown]
  - Abdominal pain upper [Unknown]
  - Feeling abnormal [Unknown]
